FAERS Safety Report 18947572 (Version 11)
Quarter: 2022Q3

REPORT INFORMATION
  Report Type: Spontaneous
  Country: IN (occurrence: IN)
  Receive Date: 20210226
  Receipt Date: 20220920
  Transmission Date: 20221027
  Serious: Yes (Hospitalization, Other)
  Sender: FDA-Public Use
  Company Number: IN-PFIZER INC-2021137125

PATIENT
  Age: 65 Year
  Sex: Female

DRUGS (10)
  1. PALBOCICLIB [Suspect]
     Active Substance: PALBOCICLIB
     Indication: Breast cancer metastatic
     Dosage: 125 MG, CYCLIC (DAY 1- DAY 21, EVERY 28 DAYS)
     Route: 048
     Dates: start: 20201207
  2. PALBOCICLIB [Suspect]
     Active Substance: PALBOCICLIB
     Dosage: 125 MG, CYCLIC (DAY 1- DAY 21, EVERY 28 DAYS)
     Route: 048
     Dates: start: 20201210
  3. PALBOCICLIB [Suspect]
     Active Substance: PALBOCICLIB
     Dosage: 125 MG, CYCLIC (OD FOR 2 WEEKS ON /2 WEEKS OFF)
  4. PALBOCICLIB [Suspect]
     Active Substance: PALBOCICLIB
     Dosage: 100 MG, CYCLIC (OD FOR 2 WEEKS ON /2 WEEKS OFF)
     Route: 048
  5. PALBOCICLIB [Suspect]
     Active Substance: PALBOCICLIB
     Dosage: 100 MG, 3 WEEKS ON AND 1 WEEK OFF FOR 1 MONTH
     Route: 048
     Dates: start: 20220810
  6. LETROZOLE [Concomitant]
     Active Substance: LETROZOLE
     Dosage: 2.5 MG, 1X/DAY FOR 1 MONTH
  7. CALCIROL [COLECALCIFEROL] [Concomitant]
     Dosage: ONCE IN 2 WEEKS
  8. ULTRACET [Concomitant]
     Active Substance: ACETAMINOPHEN\TRAMADOL HYDROCHLORIDE
     Indication: Pain
     Dosage: SOS
  9. MUCAINE [ALUMINIUM HYDROXIDE GEL;MAGNESIUM HYDROXIDE;OXETACAINE] [Concomitant]
     Dosage: 2TSF, BEFORE MEALS
  10. DENOSUMAB [Concomitant]
     Active Substance: DENOSUMAB
     Dosage: 120 MG- ONCE IN 3 MONTHS
     Route: 058

REACTIONS (18)
  - Nephrolithiasis [Unknown]
  - Renal impairment [Unknown]
  - Acute kidney injury [Unknown]
  - Chronic kidney disease [Unknown]
  - Urinary tract infection [Unknown]
  - Platelet count increased [Unknown]
  - Renal disorder [Unknown]
  - Asthenia [Unknown]
  - Vomiting [Unknown]
  - Pyrexia [Unknown]
  - Neoplasm progression [Unknown]
  - Protein urine present [Unknown]
  - Mean cell volume increased [Unknown]
  - Mean cell haemoglobin increased [Unknown]
  - Anaemia [Unknown]
  - Haemoglobin decreased [Unknown]
  - Blood creatinine increased [Unknown]
  - Urinary tract candidiasis [Unknown]

NARRATIVE: CASE EVENT DATE: 20210101
